FAERS Safety Report 23706258 (Version 2)
Quarter: 2024Q2

REPORT INFORMATION
  Report Type: Report from Study
  Country: US (occurrence: US)
  Receive Date: 20240404
  Receipt Date: 20240418
  Transmission Date: 20240716
  Serious: Yes (Death)
  Sender: FDA-Public Use
  Company Number: US-BAYER-2024A049731

PATIENT
  Age: 60 Year
  Sex: Female

DRUGS (1)
  1. BETASERON [Suspect]
     Active Substance: INTERFERON BETA-1B
     Indication: Multiple sclerosis
     Dosage: 1 ML, QOD
     Route: 058
     Dates: start: 201801

REACTIONS (1)
  - Spontaneous haemorrhage [Fatal]

NARRATIVE: CASE EVENT DATE: 20240317
